FAERS Safety Report 6876758-9 (Version None)
Quarter: 2010Q3

REPORT INFORMATION
  Report Type: 
  Country: None (occurrence: None)
  Receive Date: 20100727
  Receipt Date: 20100713
  Transmission Date: 20110219
  Serious: Yes (Other)
  Sender: FDA-Public Use
  Company Number: US-ELI_LILLY_AND_COMPANY-US201005004743

PATIENT
  Sex: Female

DRUGS (3)
  1. EVISTA [Suspect]
     Indication: OSTEOPOROSIS
     Dosage: 60 MG, DAILY (1/D)
  2. LUTEIN [Concomitant]
  3. VITAMIN TAB [Concomitant]

REACTIONS (3)
  - CATARACT [None]
  - RETINAL VASCULAR THROMBOSIS [None]
  - RETINAL VEIN OCCLUSION [None]
